FAERS Safety Report 7261017-5 (Version None)
Quarter: 2011Q1

REPORT INFORMATION
  Report Type: 
  Country: None (occurrence: None)
  Receive Date: 20110130
  Receipt Date: 20101115
  Transmission Date: 20110831
  Serious: No
  Sender: FDA-Public Use
  Company Number: US-ABBOTT-10P-163-0685343-00

PATIENT
  Sex: Female
  Weight: 104.42 kg

DRUGS (7)
  1. SKELAXIN [Concomitant]
     Indication: RHEUMATOID ARTHRITIS
  2. VALIUM [Concomitant]
     Indication: RHEUMATOID ARTHRITIS
  3. HYDROCODONE [Concomitant]
     Indication: PAIN
  4. HUMIRA [Suspect]
     Indication: RHEUMATOID ARTHRITIS
     Dates: start: 20101001
  5. SINGULAIR [Concomitant]
     Indication: HYPERSENSITIVITY
  6. ALLEGRA [Concomitant]
     Indication: HYPERSENSITIVITY
  7. LEVOTHYROXINE SODIUM [Concomitant]
     Indication: THYROID CANCER

REACTIONS (1)
  - DRUG INEFFECTIVE [None]
